FAERS Safety Report 13948945 (Version 1)
Quarter: 2017Q3

REPORT INFORMATION
  Report Type: Report from Study
  Country: AU (occurrence: AU)
  Receive Date: 20170908
  Receipt Date: 20170908
  Transmission Date: 20171128
  Serious: Yes (Life-Threatening)
  Sender: FDA-Public Use
  Company Number: AU-ROCHE-1989591

PATIENT
  Age: 57 Year
  Sex: Female

DRUGS (3)
  1. PACLITAXEL. [Suspect]
     Active Substance: PACLITAXEL
     Indication: BREAST CANCER
     Route: 065
     Dates: start: 20160315
  2. TRASTUZUMAB. [Suspect]
     Active Substance: TRASTUZUMAB
     Indication: BREAST CANCER
     Dosage: ON 07/JUN/2016, THE PATIENT RECEIVED THE MOST RECENT DOSE OF TRASTUZUMAB PRIOR TO THE EVENT ONSET.
     Route: 065
     Dates: start: 20160315
  3. PERTUZUMAB. [Suspect]
     Active Substance: PERTUZUMAB
     Indication: BREAST CANCER
     Dosage: ON 07/JUN/2016, THE PATIENT RECEIVED THE MOST RECENT DOSE OF PERTUZUMAB PRIOR TO THE EVENT ONSET.
     Route: 065
     Dates: start: 20160315

REACTIONS (1)
  - Anaphylactoid reaction [Recovered/Resolved]

NARRATIVE: CASE EVENT DATE: 20160621
